FAERS Safety Report 14583859 (Version 3)
Quarter: 2019Q3

REPORT INFORMATION
  Report Type: Spontaneous
  Country: US (occurrence: US)
  Receive Date: 20180228
  Receipt Date: 20190920
  Transmission Date: 20191004
  Serious: Yes (Hospitalization)
  Sender: FDA-Public Use
  Company Number: US-B.I. PHARMACEUTICALS,INC./RIDGEFIELD-2018-BI-011084

PATIENT
  Age: 83 Year
  Sex: Male

DRUGS (10)
  1. CARVEDILOL. [Concomitant]
     Active Substance: CARVEDILOL
     Indication: HYPERTENSION
     Dosage: STATUS: ACTIVE, QUANTITY: 0, REFILLS: NONE
     Route: 048
  2. ATORVASTATIN [Concomitant]
     Active Substance: ATORVASTATIN
     Indication: BLOOD CHOLESTEROL INCREASED
     Dosage: STATUS: ACTIVE, QUANTITY: 0, REFILLS: NONE
     Route: 048
  3. OXYCODONE [Concomitant]
     Active Substance: OXYCODONE
     Indication: PAIN
     Route: 048
  4. NEOMYCIN. [Concomitant]
     Active Substance: NEOMYCIN
     Indication: PROPHYLAXIS
  5. NEOMYCIN. [Concomitant]
     Active Substance: NEOMYCIN
     Indication: INFECTION
     Dosage: PRE OP. @ 1 PM, 2 PM, 10PM, QUANTITY 0 AND REFILLS NONE
     Route: 048
  6. COLACE [Concomitant]
     Active Substance: DOCUSATE SODIUM
     Indication: CONSTIPATION
     Route: 048
  7. PRADAXA [Suspect]
     Active Substance: DABIGATRAN ETEXILATE MESYLATE
     Indication: ATRIAL FIBRILLATION
     Route: 048
     Dates: start: 20170202
  8. METRONIDAZOLE. [Concomitant]
     Active Substance: METRONIDAZOLE
     Indication: PROPHYLAXIS
  9. PRADAXA [Suspect]
     Active Substance: DABIGATRAN ETEXILATE MESYLATE
     Indication: ANTICOAGULANT THERAPY
  10. METRONIDAZOLE. [Concomitant]
     Active Substance: METRONIDAZOLE
     Indication: INFECTION
     Dosage: 1 TAB(S) ORALLY PRN. PRE OP@ 1 PM, 2 PM, 10 PM. STATUS: ACTIVE, QUANTITY: O, REFILLS: NONE
     Route: 048

REACTIONS (1)
  - Gastrointestinal haemorrhage [Unknown]

NARRATIVE: CASE EVENT DATE: 20170210
